FAERS Safety Report 4359125-1 (Version None)
Quarter: 2004Q2

REPORT INFORMATION
  Report Type: 
  Country: None (occurrence: None)
  Receive Date: 20040512
  Receipt Date: 20040503
  Transmission Date: 20050107
  Serious: Yes (Hospitalization)
  Sender: FDA-Public Use
  Company Number: 2004SE02508

PATIENT
  Age: 19 Year
  Sex: Female

DRUGS (1)
  1. DIPRIVAN [Suspect]
     Indication: ARTHROSCOPY
     Dosage: 210 MG ONCE IV
     Route: 042
     Dates: start: 20040430, end: 20040430

REACTIONS (4)
  - DYSKINESIA [None]
  - EXCITABILITY [None]
  - NERVOUS SYSTEM DISORDER [None]
  - PAIN [None]
